FAERS Safety Report 6556446-9 (Version None)
Quarter: 2010Q1

REPORT INFORMATION
  Report Type: 
  Country: None (occurrence: None)
  Receive Date: 20100128
  Receipt Date: 20100121
  Transmission Date: 20100710
  Serious: Yes (Hospitalization)
  Sender: FDA-Public Use
  Company Number: B0629522A

PATIENT
  Sex: Male

DRUGS (7)
  1. AUGMENTIN [Suspect]
     Indication: DRUG USE FOR UNKNOWN INDICATION
     Route: 048
     Dates: start: 20100102, end: 20100112
  2. PANTOPRAZOLE [Concomitant]
     Dosage: 40MG PER DAY
     Route: 048
     Dates: start: 20100103, end: 20100112
  3. ACETYLSALICYLIC ACID [Concomitant]
     Route: 048
  4. PLAVIX [Concomitant]
     Route: 048
     Dates: start: 20100102, end: 20100112
  5. LOPRESSOR [Concomitant]
     Dosage: 1TAB PER DAY
     Route: 048
  6. ENAPREN [Concomitant]
     Dosage: 1TAB PER DAY
     Route: 048
  7. TORVAST [Concomitant]
     Dosage: 1TAB PER DAY
     Route: 048
     Dates: start: 20100102, end: 20100112

REACTIONS (4)
  - ERYTHEMA [None]
  - PARAESTHESIA [None]
  - PRURITUS [None]
  - PYREXIA [None]
